FAERS Safety Report 4974562-X (Version None)
Quarter: 2006Q2

REPORT INFORMATION
  Report Type: 
  Country: None (occurrence: None)
  Receive Date: 20060410
  Receipt Date: 20060329
  Transmission Date: 20061013
  Serious: Yes (Hospitalization)
  Sender: FDA-Public Use
  Company Number: 2006044919

PATIENT
  Sex: Male

DRUGS (1)
  1. GENOTROPIN [Suspect]
     Indication: ILL-DEFINED DISORDER
     Dosage: 5.3 MG (5.3 MG, 1 IN 1 D), SUBCUTANEOUS
     Route: 058
     Dates: start: 20060321

REACTIONS (3)
  - ASTHENIA [None]
  - FISTULA [None]
  - WOUND [None]
